FAERS Safety Report 13352640 (Version 1)
Quarter: 2017Q1

REPORT INFORMATION
  Report Type: Spontaneous
  Country: IR (occurrence: IR)
  Receive Date: 20170320
  Receipt Date: 20170320
  Transmission Date: 20170429
  Serious: Yes (Death, Hospitalization, Other)
  Sender: FDA-Public Use
  Company Number: IR-MYLANLABS-2017M1017009

PATIENT

DRUGS (2)
  1. PAROXETINE. [Suspect]
     Active Substance: PAROXETINE
     Dosage: 20MG/DAY
     Route: 065
  2. PAROXETINE. [Suspect]
     Active Substance: PAROXETINE
     Indication: MAJOR DEPRESSION
     Dosage: 10MG/DAY; INCREASED TO 20MG/DAY
     Route: 065

REACTIONS (10)
  - Haemorrhage intracranial [Fatal]
  - Anxiety [Unknown]
  - Peritoneal haemorrhage [Fatal]
  - Haemothorax [Fatal]
  - Coma [Fatal]
  - Suicidal ideation [Fatal]
  - Shock haemorrhagic [Fatal]
  - Completed suicide [Fatal]
  - Fall [Fatal]
  - Hip fracture [Fatal]
